FAERS Safety Report 4510354-3 (Version None)
Quarter: 2004Q4

REPORT INFORMATION
  Report Type: 
  Country: None (occurrence: None)
  Receive Date: 20041122
  Receipt Date: 20041115
  Transmission Date: 20050328
  Serious: Yes (Other)
  Sender: FDA-Public Use
  Company Number: 200415517BCC

PATIENT
  Age: 42 Year
  Sex: Male

DRUGS (1)
  1. BACTINE SPRAY [Suspect]
     Dates: start: 20041113

REACTIONS (3)
  - ACCIDENTAL EXPOSURE [None]
  - CORNEAL ABRASION [None]
  - EYE PAIN [None]
